FAERS Safety Report 7147959-X (Version None)
Quarter: 2010Q4

REPORT INFORMATION
  Report Type: 
  Country: None (occurrence: None)
  Receive Date: 20101209
  Receipt Date: 20101129
  Transmission Date: 20110411
  Serious: Yes (Death, Hospitalization)
  Sender: FDA-Public Use
  Company Number: JP-JNJFOC-20101200269

PATIENT
  Age: 60 Year
  Sex: Male

DRUGS (6)
  1. REMICADE [Suspect]
     Indication: RHEUMATOID ARTHRITIS
     Route: 042
  2. REMICADE [Suspect]
     Dosage: RECEIVED 27 INFUSIONS
     Route: 042
  3. METHOTREXATE [Suspect]
     Indication: RHEUMATOID ARTHRITIS
     Route: 065
  4. PREDNISOLONE [Suspect]
     Indication: RHEUMATOID ARTHRITIS
     Route: 065
  5. METHYLPREDNISOLONE [Concomitant]
  6. GABEXATE MESILATE [Concomitant]

REACTIONS (2)
  - HEPATITIS FULMINANT [None]
  - HERPES VIRUS INFECTION [None]
